FAERS Safety Report 8260676-8 (Version None)
Quarter: 2012Q2

REPORT INFORMATION
  Report Type: 
  Country: None (occurrence: None)
  Receive Date: 20120405
  Receipt Date: 20120326
  Transmission Date: 20120825
  Serious: Yes (Hospitalization)
  Sender: FDA-Public Use
  Company Number: DE-BIOGENIDEC-2011BI039298

PATIENT
  Age: 56 Year
  Sex: Male

DRUGS (2)
  1. LEVOTHYROXINE SODIUM [Concomitant]
     Indication: THYROIDECTOMY
     Route: 048
  2. TYSABRI [Suspect]
     Indication: MULTIPLE SCLEROSIS
     Route: 042
     Dates: start: 20110101

REACTIONS (1)
  - NEURALGIC AMYOTROPHY [None]
